FAERS Safety Report 9191719 (Version 1)
Quarter: 2013Q1

REPORT INFORMATION
  Report Type: Spontaneous
  Country: GB (occurrence: GB)
  Receive Date: 20130326
  Receipt Date: 20130326
  Transmission Date: 20140127
  Serious: Yes (Other)
  Sender: FDA-Public Use
  Company Number: GB-B.I. PHARMACEUTICALS,INC./RIDGEFIELD-2013-UK-00428UK

PATIENT
  Age: 73 Year
  Sex: Male
  Weight: 90 kg

DRUGS (5)
  1. PRADAXA [Suspect]
     Indication: ATRIAL FIBRILLATION
     Dosage: 220 MG
     Route: 048
     Dates: start: 20121016, end: 20121031
  2. CANDESARTAN [Concomitant]
  3. EZETIMIBE [Concomitant]
  4. INHALERS [Concomitant]
  5. VERAPAMIL [Concomitant]

REACTIONS (2)
  - Thrombosis [Recovered/Resolved]
  - Abdominal pain [Unknown]
